FAERS Safety Report 12632297 (Version 2)
Quarter: 2016Q3

REPORT INFORMATION
  Report Type: Spontaneous
  Country: US (occurrence: US)
  Receive Date: 20160808
  Receipt Date: 20160808
  Transmission Date: 20161109
  Serious: No
  Sender: FDA-Public Use
  Company Number: US-BEH-2016062333

PATIENT
  Sex: Female
  Weight: 56 kg

DRUGS (32)
  1. ADVAIR HFA [Concomitant]
     Active Substance: FLUTICASONE PROPIONATE\SALMETEROL XINAFOATE
  2. RANITIDINE. [Concomitant]
     Active Substance: RANITIDINE
  3. DICYCLOMINE [Concomitant]
     Active Substance: DICYCLOMINE HYDROCHLORIDE
  4. PROBIOTIC [Concomitant]
     Active Substance: PROBIOTICS NOS
  5. MAGNESIUM [Concomitant]
     Active Substance: MAGNESIUM
  6. QVAR [Concomitant]
     Active Substance: BECLOMETHASONE DIPROPIONATE
  7. BIOTIN [Concomitant]
     Active Substance: BIOTIN
  8. ZINC [Concomitant]
     Active Substance: ZINC\ZINC CHLORIDE
  9. ASPIRIN. [Concomitant]
     Active Substance: ASPIRIN
  10. IPRATROPIUM [Concomitant]
     Active Substance: IPRATROPIUM
  11. SELENIUM [Concomitant]
     Active Substance: SELENIUM
  12. BENADRYL [Concomitant]
     Active Substance: DIPHENHYDRAMINE HYDROCHLORIDE
  13. ZIPSOR [Concomitant]
     Active Substance: DICLOFENAC POTASSIUM
  14. TIROSINT [Concomitant]
     Active Substance: LEVOTHYROXINE SODIUM
  15. ZAFIRLUKAST. [Concomitant]
     Active Substance: ZAFIRLUKAST
  16. ZYRTEC [Concomitant]
     Active Substance: CETIRIZINE HYDROCHLORIDE
  17. CALCIUM [Concomitant]
     Active Substance: CALCIUM
  18. PROMETHAZINE [Concomitant]
     Active Substance: PROMETHAZINE\PROMETHAZINE HYDROCHLORIDE
  19. LIDOCAINE/PRILOCAINE [Concomitant]
     Active Substance: LIDOCAINE\PRILOCAINE
  20. EPIPEN [Concomitant]
     Active Substance: EPINEPHRINE
  21. PANTOPRAZOLE [Concomitant]
     Active Substance: PANTOPRAZOLE SODIUM
  22. GAS-X [Concomitant]
     Active Substance: DIMETHICONE
  23. ACETAMINOPHEN. [Concomitant]
     Active Substance: ACETAMINOPHEN
  24. PROPAFENONE. [Concomitant]
     Active Substance: PROPAFENONE
  25. VITAMIN C [Concomitant]
     Active Substance: ASCORBIC ACID
  26. XOPENEX [Concomitant]
     Active Substance: LEVALBUTEROL HYDROCHLORIDE
  27. AZELASTINE [Concomitant]
     Active Substance: AZELASTINE
  28. COLACE [Concomitant]
     Active Substance: DOCUSATE SODIUM
  29. HIZENTRA [Suspect]
     Active Substance: HUMAN IMMUNOGLOBULIN G
     Indication: IMMUNODEFICIENCY COMMON VARIABLE
     Route: 058
  30. DIPHENHYDRAMINE. [Concomitant]
     Active Substance: DIPHENHYDRAMINE
  31. LEVALBUTEROL. [Concomitant]
     Active Substance: LEVALBUTEROL
  32. LIOTHYRONINE [Concomitant]
     Active Substance: LIOTHYRONINE

REACTIONS (5)
  - Limb discomfort [Unknown]
  - Headache [Unknown]
  - Infusion site swelling [Unknown]
  - Balance disorder [Unknown]
  - Infusion site extravasation [Unknown]
